FAERS Safety Report 21050323 (Version 2)
Quarter: 2022Q3

REPORT INFORMATION
  Report Type: Report from Study
  Country: CO (occurrence: CO)
  Receive Date: 20220707
  Receipt Date: 20220805
  Transmission Date: 20221027
  Serious: Yes (Life-Threatening, Hospitalization, Other)
  Sender: FDA-Public Use
  Company Number: CO-ABBVIE-22K-036-4457532-00

PATIENT
  Sex: Female
  Weight: 155 kg

DRUGS (3)
  1. HUMIRA [Suspect]
     Active Substance: ADALIMUMAB
     Indication: Psoriatic arthropathy
     Route: 058
  2. HUMIRA [Suspect]
     Active Substance: ADALIMUMAB
     Indication: Product used for unknown indication
     Route: 058
     Dates: start: 20100810
  3. INSULIN NOS [Concomitant]
     Active Substance: INSULIN NOS
     Indication: Diabetes mellitus
     Dosage: 70 CM EVERY 24 HOURS
     Route: 058

REACTIONS (14)
  - Aneurysm [Recovered/Resolved]
  - Surgery [Recovered/Resolved]
  - Hernia [Unknown]
  - Dysstasia [Unknown]
  - Gait disturbance [Not Recovered/Not Resolved]
  - Obesity [Not Recovered/Not Resolved]
  - Spondylitis [Unknown]
  - Joint swelling [Recovering/Resolving]
  - Parkinson^s disease [Recovering/Resolving]
  - Scar [Recovered/Resolved]
  - Pruritus [Recovered/Resolved]
  - Back pain [Unknown]
  - Arthralgia [Recovered/Resolved]
  - Pain [Not Recovered/Not Resolved]

NARRATIVE: CASE EVENT DATE: 20130101
